FAERS Safety Report 13505472 (Version 5)
Quarter: 2017Q3

REPORT INFORMATION
  Report Type: Report from Study
  Country: US (occurrence: US)
  Receive Date: 20170502
  Receipt Date: 20170822
  Transmission Date: 20171127
  Serious: Yes (Hospitalization, Other)
  Sender: FDA-Public Use
  Company Number: US-GILEAD-2017-0269946

PATIENT
  Age: 49 Year
  Sex: Female
  Weight: 54 kg

DRUGS (13)
  1. AMBRISENTAN [Suspect]
     Active Substance: AMBRISENTAN
     Indication: PULMONARY ARTERIAL HYPERTENSION
     Dosage: 5 MG, BID
     Route: 048
     Dates: start: 20170520
  2. ATIVAN [Concomitant]
     Active Substance: LORAZEPAM
  3. COREG [Concomitant]
     Active Substance: CARVEDILOL
  4. SENSIPAR [Concomitant]
     Active Substance: CINACALCET HYDROCHLORIDE
  5. NORVASC [Concomitant]
     Active Substance: AMLODIPINE BESYLATE
  6. MS CONTIN [Concomitant]
     Active Substance: MORPHINE SULFATE
  7. CLONIDINE. [Concomitant]
     Active Substance: CLONIDINE
  8. ADCIRCA [Concomitant]
     Active Substance: TADALAFIL
  9. AMBRISENTAN [Suspect]
     Active Substance: AMBRISENTAN
     Indication: SLEEP APNOEA SYNDROME
     Dosage: 5 MG, QD
     Route: 048
     Dates: start: 20170425
  10. COMBIVENT [Concomitant]
     Active Substance: ALBUTEROL SULFATE\IPRATROPIUM BROMIDE
  11. CLONIDINE HCL PCH [Concomitant]
  12. AMBRISENTAN [Suspect]
     Active Substance: AMBRISENTAN
     Indication: VASCULITIS
     Dosage: 10 MG, QD
     Route: 048
     Dates: start: 201508, end: 20170425
  13. AMBRISENTAN [Suspect]
     Active Substance: AMBRISENTAN
     Indication: ANGIOPATHY

REACTIONS (8)
  - Pyrexia [Recovered/Resolved]
  - Pneumonia [Recovered/Resolved]
  - Intentional product use issue [Not Recovered/Not Resolved]
  - Anxiety [Recovering/Resolving]
  - Dyspnoea [Recovered/Resolved]
  - Haemoptysis [Recovered/Resolved]
  - Productive cough [Recovered/Resolved]
  - Dyspnoea [Recovered/Resolved]

NARRATIVE: CASE EVENT DATE: 201612
